FAERS Safety Report 4506080-7 (Version None)
Quarter: 2005Q1

REPORT INFORMATION
  Report Type: 
  Country: None (occurrence: None)
  Receive Date: 20041025
  Receipt Date: 20040507
  Transmission Date: 20050727
  Serious: Yes (Death)
  Sender: FDA-Public Use
  Company Number: US-JNJFOC-20040501573

PATIENT
  Age: 51 Year
  Sex: Female

DRUGS (4)
  1. INFLIXIMAB (INFLIXIMAB, RECOMBINANT) LYOPHILIZED POWDER [Suspect]
     Indication: RHEUMATOID ARTHRITIS
     Dates: start: 20010303, end: 20030312
  2. METHOTREXATE [Concomitant]
  3. PLAQUENIL [Concomitant]
  4. COUMADIN [Concomitant]

REACTIONS (1)
  - PNEUMONIA LEGIONELLA [None]
